FAERS Safety Report 8027031-7 (Version None)
Quarter: 2012Q1

REPORT INFORMATION
  Report Type: 
  Country: None (occurrence: None)
  Receive Date: 20120106
  Receipt Date: 20120102
  Transmission Date: 20120608
  Serious: Yes (Hospitalization, Other)
  Sender: FDA-Public Use
  Company Number: FR-PFIZER INC-2012000091

PATIENT
  Age: 70 Year
  Sex: Female

DRUGS (11)
  1. SUTENT [Suspect]
     Dosage: 50 MG, 1X/DAY
     Dates: start: 20110901, end: 20110910
  2. OROCAL [Concomitant]
  3. IMODIUM [Concomitant]
  4. REPAGLINIDE [Concomitant]
  5. LEVOTHYROXINE SODIUM [Concomitant]
  6. LANSOPRAZOLE [Concomitant]
  7. KAYEXALATE [Concomitant]
  8. SPECIAFOLDINE [Concomitant]
  9. SUTENT [Suspect]
     Indication: METASTASES TO LUNG
     Dosage: 50 MG, 1X/DAY
     Dates: start: 20071101, end: 20110506
  10. BISOPROLOL FUMARATE [Concomitant]
  11. FOSRENOL [Concomitant]

REACTIONS (1)
  - HEPATITIS ACUTE [None]
